FAERS Safety Report 9405348 (Version 2)
Quarter: 2013Q3

REPORT INFORMATION
  Report Type: Spontaneous
  Country: AU (occurrence: AU)
  Receive Date: 20130717
  Receipt Date: 20130821
  Transmission Date: 20140515
  Serious: Yes (Hospitalization)
  Sender: FDA-Public Use
  Company Number: AU-009507513-1307AUS007754

PATIENT
  Age: 1 Year
  Sex: Male
  Weight: 12 kg

DRUGS (1)
  1. CLARATYNE [Suspect]
     Dosage: APPROXIMATELY ABOUT 2 TABLETS
     Route: 048
     Dates: start: 201103

REACTIONS (1)
  - Accidental exposure to product by child [Unknown]
